FAERS Safety Report 9140936 (Version 3)
Quarter: 2014Q2

REPORT INFORMATION
  Report Type: Spontaneous
  Country: US (occurrence: US)
  Receive Date: 20130305
  Receipt Date: 20140404
  Transmission Date: 20141212
  Serious: Yes (Death, Hospitalization, Other)
  Sender: FDA-Public Use
  Company Number: US-B.I. PHARMACEUTICALS,INC./RIDGEFIELD-2013-BI-05468BP

PATIENT
  Age: 72 Year
  Sex: Male
  Weight: 81.65 kg

DRUGS (2)
  1. PRADAXA [Suspect]
     Indication: ATRIAL FIBRILLATION
     Dosage: 300 MG
     Route: 065
     Dates: start: 201105, end: 201108
  2. SPIRIVA [Concomitant]
     Route: 065

REACTIONS (3)
  - Pulmonary alveolar haemorrhage [Fatal]
  - Respiratory failure [Unknown]
  - Gastrointestinal haemorrhage [Unknown]
